FAERS Safety Report 6233463-X (Version None)
Quarter: 2009Q2

REPORT INFORMATION
  Report Type: 
  Country: None (occurrence: None)
  Receive Date: 20090616
  Receipt Date: 20090616
  Transmission Date: 20091009
  Serious: Yes (Other)
  Sender: FDA-Public Use
  Company Number: None

PATIENT
  Age: 3 Year
  Sex: Male
  Weight: 17.2367 kg

DRUGS (1)
  1. SINGULAIR [Suspect]
     Indication: SEASONAL ALLERGY
     Dosage: 1 TABLET BEDTIME PO LAST 30 DAYS
     Route: 048

REACTIONS (6)
  - ABNORMAL DREAMS [None]
  - AGGRESSION [None]
  - AGITATION [None]
  - INSOMNIA [None]
  - IRRITABILITY [None]
  - SLEEP TALKING [None]
